FAERS Safety Report 9116342 (Version 1)
Quarter: 2013Q1

REPORT INFORMATION
  Report Type: Spontaneous
  Country: US (occurrence: US)
  Receive Date: 20130225
  Receipt Date: 20130225
  Transmission Date: 20140127
  Serious: No
  Sender: FDA-Public Use
  Company Number: US-ENDO PHARMACEUTICALS INC.-FORT20110095

PATIENT
  Age: 59 Year
  Sex: Male
  Weight: 81.27 kg

DRUGS (4)
  1. FORTESTA [Suspect]
     Indication: BLOOD TESTOSTERONE DECREASED
     Route: 061
     Dates: start: 201109
  2. FORTESTA [Suspect]
     Route: 061
     Dates: end: 201109
  3. FLU SHOT [Suspect]
     Indication: ANTIVIRAL PROPHYLAXIS
     Dosage: UNK
     Route: 065
     Dates: start: 20111024, end: 20111024
  4. TETANUS TOXOIDS [Suspect]
     Indication: PROPHYLAXIS
     Dosage: UNK
     Route: 065
     Dates: start: 20111024, end: 20111024

REACTIONS (2)
  - Inappropriate schedule of drug administration [Recovered/Resolved]
  - Application site pain [Recovered/Resolved]
